FAERS Safety Report 5078535-0 (Version None)
Quarter: 2006Q3

REPORT INFORMATION
  Report Type: 
  Country: None (occurrence: None)
  Receive Date: 20060808
  Receipt Date: 20060724
  Transmission Date: 20061208
  Serious: Yes (Other)
  Sender: FDA-Public Use
  Company Number: C-06-0040

PATIENT
  Age: 82 Year
  Sex: Female

DRUGS (6)
  1. LACTULOSE [Suspect]
     Indication: CONSTIPATION
     Dosage: 2 TBLSP, 2X DAY, ORAL
     Route: 048
     Dates: start: 20060517, end: 20060729
  2. COZAAR [Concomitant]
  3. PLAVIX [Concomitant]
  4. LIPITOR [Concomitant]
  5. NORVASC [Concomitant]
  6. METHYLDOPA [Concomitant]

REACTIONS (2)
  - ABDOMINAL PAIN [None]
  - DRUG INEFFECTIVE [None]
